FAERS Safety Report 6287677-3 (Version None)
Quarter: 2009Q3

REPORT INFORMATION
  Report Type: 
  Country: None (occurrence: None)
  Receive Date: 20090727
  Receipt Date: 20090727
  Transmission Date: 20100115
  Serious: No
  Sender: FDA-Public Use
  Company Number: None

PATIENT
  Sex: Male

DRUGS (1)
  1. CEFUROXIME AXETIL [Suspect]
     Indication: SINUSITIS
     Dosage: 250 MG, BID, PO, SINGLE DOSE
     Route: 048

REACTIONS (2)
  - DYSGEUSIA [None]
  - PRODUCT QUALITY ISSUE [None]
